FAERS Safety Report 8966194 (Version 1)
Quarter: 2012Q4

REPORT INFORMATION
  Report Type: 
  Country: US (occurrence: US)
  Receive Date: 20121217
  Receipt Date: 20121217
  Transmission Date: 20130627
  Serious: No
  Sender: FDA-Public Use
  Company Number: US-PFIZER INC-2012316430

PATIENT

DRUGS (2)
  1. LYRICA [Suspect]
     Indication: SHOULDER PAIN
     Dosage: UNK
  2. OXYCODONE HYDROCHLORIDE [Suspect]
     Dosage: UNK

REACTIONS (1)
  - Therapeutic response unexpected [Unknown]
